FAERS Safety Report 24276828 (Version 5)
Quarter: 2024Q4

REPORT INFORMATION
  Report Type: Spontaneous
  Country: FR (occurrence: FR)
  Receive Date: 20240903
  Receipt Date: 20241129
  Transmission Date: 20250114
  Serious: Yes (Life-Threatening, Hospitalization, Other)
  Sender: CSL BEHRING
  Company Number: FR-BEH-2024177976

PATIENT
  Age: 35 Year
  Sex: Female

DRUGS (9)
  1. PRIVIGEN [Suspect]
     Active Substance: HUMAN IMMUNOGLOBULIN G
     Indication: Transplant rejection
     Dosage: 20 G
     Route: 042
     Dates: start: 2024
  2. PRIVIGEN [Suspect]
     Active Substance: HUMAN IMMUNOGLOBULIN G
     Indication: Off label use
     Dosage: 20 G
     Route: 042
     Dates: start: 20240820
  3. PRIVIGEN [Suspect]
     Active Substance: HUMAN IMMUNOGLOBULIN G
     Dosage: 40 G
     Route: 042
     Dates: start: 20240820
  4. PRIVIGEN [Suspect]
     Active Substance: HUMAN IMMUNOGLOBULIN G
     Dosage: 20 G
     Route: 042
  5. PRIVIGEN [Suspect]
     Active Substance: HUMAN IMMUNOGLOBULIN G
     Dosage: 40 G
     Route: 042
  6. TACROLIMUS [Concomitant]
     Active Substance: TACROLIMUS
     Dosage: 3 MG, QD  (IN THE MORNING)
  7. CERTICAN [Concomitant]
     Active Substance: EVEROLIMUS
     Dosage: 0.75 MG, BID (MORNING AND EVENING)
  8. PREDNISONE [Concomitant]
     Active Substance: PREDNISONE
     Dosage: 10 MG, QD (IN THE MORNING)
  9. ZITHROMAX [Concomitant]
     Active Substance: AZITHROMYCIN DIHYDRATE
     Dosage: 250 MG, QOD, IN THE MORNING

REACTIONS (6)
  - Pseudomonas infection [Recovered/Resolved]
  - Blood culture positive [Recovered/Resolved]
  - Human rhinovirus test positive [Recovered/Resolved]
  - Headache [Recovered/Resolved]
  - Pyrexia [Recovered/Resolved]
  - Off label use [Unknown]

NARRATIVE: CASE EVENT DATE: 20240820
